FAERS Safety Report 7721949-8 (Version None)
Quarter: 2011Q3

REPORT INFORMATION
  Report Type: 
  Country: None (occurrence: None)
  Receive Date: 20110831
  Receipt Date: 20110825
  Transmission Date: 20111222
  Serious: Yes (Other)
  Sender: FDA-Public Use
  Company Number: US-BAYER-2011-079389

PATIENT
  Sex: Female

DRUGS (2)
  1. YASMIN [Suspect]
     Dosage: UNK
     Dates: start: 20060101, end: 20110101
  2. YAZ [Suspect]
     Dosage: UNK
     Dates: start: 20060101, end: 20110101

REACTIONS (1)
  - CHOLECYSTECTOMY [None]
